FAERS Safety Report 5341525-4 (Version None)
Quarter: 2007Q2

REPORT INFORMATION
  Report Type: 
  Country: None (occurrence: None)
  Receive Date: 20070601
  Receipt Date: 20070523
  Transmission Date: 20071010
  Serious: Yes (Death, Hospitalization)
  Sender: FDA-Public Use
  Company Number: HQWYE318623MAY07

PATIENT
  Age: 81 Year
  Sex: Male

DRUGS (20)
  1. CORDARONE [Suspect]
     Route: 048
     Dates: end: 20070218
  2. LASIX [Suspect]
     Route: 048
     Dates: end: 20070218
  3. VENTOLIN [Concomitant]
     Dosage: 2 UNIT EVERY 1 DAY
     Route: 065
  4. LOVENOX [Suspect]
     Route: 058
     Dates: end: 20070219
  5. ALDACTONE [Suspect]
     Route: 048
     Dates: start: 20070207, end: 20070219
  6. COLCHIMAX [Suspect]
     Indication: CHONDROCALCINOSIS
     Route: 048
     Dates: start: 20070205, end: 20070220
  7. COLCHIMAX [Suspect]
     Indication: GOUT
  8. VASTEN [Concomitant]
     Dosage: 1 UNIT EVERY 1 DAY
     Route: 065
  9. KARDEGIC [Concomitant]
     Dosage: 1 UNIT EVERY 1 DAY
     Route: 065
  10. IMODIUM [Concomitant]
     Dosage: 1 UNIT EVERY 1 DAY
     Route: 065
  11. SACCHAROMYCES BOULARDII [Concomitant]
     Dosage: 3 UNIT EVERY 1 DAY
     Route: 065
  12. SINGULAIR [Concomitant]
     Dosage: 1 UNIT EVERY 1 DAY
     Route: 065
  13. SPIRIVA [Concomitant]
     Dosage: 1 UNIT EVERY 1 DAY
     Route: 065
  14. ALLOPURINOL [Concomitant]
     Dosage: 1 UNIT EVERY 1 DAY
     Route: 065
  15. ROCEPHIN [Concomitant]
     Indication: PNEUMONIA
     Route: 065
     Dates: start: 20070129
  16. ROCEPHIN [Concomitant]
     Indication: INFECTION
  17. ACETAMINOPHEN [Concomitant]
     Dosage: UNKNOWN
     Route: 065
  18. TAVANIC [Concomitant]
     Indication: PNEUMONIA
     Dosage: UNKNOWN
     Route: 065
  19. TAVANIC [Concomitant]
     Indication: INFECTION
  20. FLAGYL [Suspect]
     Indication: CLOSTRIDIUM COLITIS
     Dosage: 3 UNIT EVERY 1 DAY;  CUMULATIVE DOSE TO EVENT: 6 UNIT
     Route: 048
     Dates: start: 20070214, end: 20070219

REACTIONS (4)
  - CYTOLYTIC HEPATITIS [None]
  - HEPATITIS CHOLESTATIC [None]
  - PANCYTOPENIA [None]
  - RENAL FAILURE ACUTE [None]
